FAERS Safety Report 15394099 (Version 1)
Quarter: 2018Q3

REPORT INFORMATION
  Report Type: Spontaneous
  Country: AU (occurrence: AU)
  Receive Date: 20180918
  Receipt Date: 20180918
  Transmission Date: 20181010
  Serious: Yes (Hospitalization)
  Sender: FDA-Public Use
  Company Number: AU-BAXTER-2018BAX023627

PATIENT
  Sex: Female

DRUGS (4)
  1. SODIUM CHLORIDE (VIAFLO) 1000ML [Suspect]
     Active Substance: SODIUM CHLORIDE
     Indication: MEDICATION DILUTION
     Dosage: PACLITAXEL COMPOUNDED WITH SODIUM CHLORIDE 0.9%; 3 DOSES IN TOTAL (1 DOSE PER WEEK)
     Route: 042
     Dates: start: 20180815, end: 20180829
  2. PACLITAXEL. [Suspect]
     Active Substance: PACLITAXEL
     Indication: TRIPLE NEGATIVE BREAST CANCER
     Dosage: PACLITAXEL COMPOUNDED WITH SODIUM CHLORIDE 0.9%; 3 DOSES IN TOTAL (1 DOSE PER WEEK)
     Route: 042
     Dates: start: 20180815, end: 20180829
  3. ENDOXAN CYCLOPHOSPHAMIDE 2G (AS MONOHYDRATE) POWDER FOR INJECTION VIAL [Suspect]
     Active Substance: CYCLOPHOSPHAMIDE
     Indication: PRODUCT USED FOR UNKNOWN INDICATION
     Dosage: 4 CYCLES AS PART OF DDAC
     Route: 065
     Dates: start: 20180620, end: 20180801
  4. DOXORUBICIN [Suspect]
     Active Substance: DOXORUBICIN
     Indication: PRODUCT USED FOR UNKNOWN INDICATION
     Dosage: 4 CYCLES AS PART OF DDAC
     Route: 065
     Dates: start: 20180620, end: 20180801

REACTIONS (1)
  - Pneumonitis [Recovering/Resolving]
